FAERS Safety Report 4998057-2 (Version None)
Quarter: 2006Q2

REPORT INFORMATION
  Report Type: 
  Country: None (occurrence: None)
  Receive Date: 20060510
  Receipt Date: 20060503
  Transmission Date: 20061013
  Serious: Yes (Hospitalization)
  Sender: FDA-Public Use
  Company Number: US-MERCK-0605USA00708

PATIENT
  Age: 79 Year
  Sex: Female

DRUGS (12)
  1. FOSAMAX [Suspect]
     Indication: OSTEOPOROSIS
     Route: 048
     Dates: start: 20030501
  2. ASPIRIN [Concomitant]
     Route: 065
  3. NEXIUM [Concomitant]
     Route: 065
  4. SYNTHROID [Concomitant]
     Route: 065
  5. ARICEPT [Concomitant]
     Route: 065
  6. PLAVIX [Concomitant]
     Route: 065
  7. HYZAAR [Concomitant]
     Route: 048
  8. TOPROL-XL [Concomitant]
     Route: 065
  9. MOBIC [Concomitant]
     Route: 065
  10. ISOSORBIDE [Concomitant]
     Route: 065
  11. QUININE SULFATE [Concomitant]
     Route: 065
  12. DARVOCET [Concomitant]
     Route: 065

REACTIONS (2)
  - ERUCTATION [None]
  - SYNCOPE [None]
